FAERS Safety Report 5839130-6 (Version None)
Quarter: 2008Q3

REPORT INFORMATION
  Report Type: 
  Country: None (occurrence: None)
  Receive Date: 20080806
  Receipt Date: 20080725
  Transmission Date: 20090109
  Serious: Yes (Other)
  Sender: FDA-Public Use
  Company Number: 2008SP013399

PATIENT
  Age: 41 Year
  Sex: Male

DRUGS (2)
  1. RIBAVIRIN [Suspect]
     Indication: HEPATITIS C
     Dates: start: 20040806, end: 20041105
  2. PEGASYS [Suspect]
     Indication: HEPATITIS C
     Dates: start: 20040806, end: 20041105

REACTIONS (1)
  - PSORIASIS [None]
